FAERS Safety Report 4983492-9 (Version None)
Quarter: 2006Q2

REPORT INFORMATION
  Report Type: 
  Country: None (occurrence: None)
  Receive Date: 20060426
  Receipt Date: 20060117
  Transmission Date: 20061013
  Serious: Yes (Hospitalization, Other)
  Sender: FDA-Public Use
  Company Number: US-MERCK-0601USA02147

PATIENT
  Sex: Male
  Weight: 84 kg

DRUGS (6)
  1. VIOXX [Suspect]
     Indication: GOUT
     Route: 048
     Dates: start: 20001101, end: 20040901
  2. SYNTHROID [Concomitant]
     Route: 065
  3. ALLOPURINOL [Concomitant]
     Route: 065
  4. CORGARD [Concomitant]
     Indication: MIGRAINE
     Route: 065
     Dates: start: 19860101
  5. LIPITOR [Concomitant]
     Route: 065
     Dates: start: 20020710
  6. MIDRIN [Concomitant]
     Indication: CLUSTER HEADACHE
     Route: 065
     Dates: start: 19860101

REACTIONS (4)
  - CORONARY ARTERY DISEASE [None]
  - HYPOTHYROIDISM [None]
  - MYOCARDIAL INFARCTION [None]
  - SLEEP APNOEA SYNDROME [None]
